FAERS Safety Report 25995498 (Version 1)
Quarter: 2025Q4

REPORT INFORMATION
  Report Type: Spontaneous
  Country: US (occurrence: US)
  Receive Date: 20251104
  Receipt Date: 20251104
  Transmission Date: 20260118
  Serious: Yes (Hospitalization, Other)
  Sender: MANKIND PHARMA
  Company Number: US-MANKIND PHARMA LIMITED-2025-US-00165

PATIENT

DRUGS (2)
  1. CLOMIPRAMINE [Suspect]
     Active Substance: CLOMIPRAMINE
     Indication: Obsessive-compulsive disorder
     Dosage: 25 MILLIGRAM
     Route: 048
  2. QUETIAPINE [Suspect]
     Active Substance: QUETIAPINE
     Indication: Obsessive-compulsive disorder
     Dosage: 100 MILLIGRAM, QD
     Route: 048

REACTIONS (17)
  - Obsessive-compulsive symptom [Unknown]
  - Condition aggravated [Unknown]
  - Hypokalaemia [Unknown]
  - Intentional overdose [Unknown]
  - Serotonin syndrome [Recovering/Resolving]
  - Muscle rigidity [Recovered/Resolved]
  - Hyperreflexia [Unknown]
  - Myoclonus [Unknown]
  - Abnormal behaviour [Unknown]
  - Paranoia [Unknown]
  - Insomnia [Unknown]
  - Tremor [Recovered/Resolved]
  - Cortisol increased [Unknown]
  - Sinus tachycardia [Recovered/Resolved]
  - Blood pressure increased [Unknown]
  - Hyperhidrosis [Recovered/Resolved]
  - Treatment noncompliance [Unknown]
